FAERS Safety Report 21899310 (Version 2)
Quarter: 2023Q1

REPORT INFORMATION
  Report Type: Report from Study
  Country: AT (occurrence: AT)
  Receive Date: 20230123
  Receipt Date: 20230127
  Transmission Date: 20230418
  Serious: Yes (Other)
  Sender: FDA-Public Use
  Company Number: AT-MYLANLABS-2023M1004097

PATIENT
  Age: 9 Year
  Sex: Male

DRUGS (8)
  1. BEVACIZUMAB [Suspect]
     Active Substance: BEVACIZUMAB
     Indication: Medulloblastoma recurrent
     Dosage: 10 MG/KG, BIWEEKLY(SOLUTION FOR INFUSION)
     Route: 042
  2. CELECOXIB [Suspect]
     Active Substance: CELECOXIB
     Indication: Medulloblastoma recurrent
     Dosage: (0.5 DAY) BID VIA ORAL USE
     Route: 048
  3. CYCLOPHOSPHAMIDE [Suspect]
     Active Substance: CYCLOPHOSPHAMIDE
     Indication: Medulloblastoma recurrent
     Dosage: 2.5 MILLIGRAM/KILOGRAM, QD(MAX.100 MG)
     Route: 065
  4. CYTARABINE [Suspect]
     Active Substance: CYTARABINE
     Indication: Medulloblastoma recurrent
     Dosage: 50 MG(0-3YR 25MG,3-9YR 35MG,GREATER THAN9YR 50MG)
     Route: 050
  5. ETOPOSIDE [Suspect]
     Active Substance: ETOPOSIDE
     Indication: Medulloblastoma recurrent
     Dosage: UNK UNK, QD, (35-50 MG/M2 DAILY)
     Route: 048
  6. ETOPOSIDE [Suspect]
     Active Substance: ETOPOSIDE
     Dosage: 0.5MG,{1YR0.25MG DAILY FOR 5DAY,INTRAVENTRICULAR
     Route: 050
  7. FENOFIBRATE [Suspect]
     Active Substance: FENOFIBRATE
     Indication: Medulloblastoma recurrent
     Dosage: 90 MILLIGRAM/SQ. METER, QD(MAX. 200 MG)
     Route: 048
  8. THALIDOMIDE [Suspect]
     Active Substance: THALIDOMIDE
     Indication: Medulloblastoma recurrent
     Dosage: 3 MILLIGRAM/KILOGRAM, QD
     Route: 048

REACTIONS (1)
  - Acute myeloid leukaemia [Unknown]
